FAERS Safety Report 15610035 (Version 1)
Quarter: 2018Q4

REPORT INFORMATION
  Report Type: Report from Study
  Country: US (occurrence: US)
  Receive Date: 20181113
  Receipt Date: 20181113
  Transmission Date: 20190205
  Serious: Yes (Other)
  Sender: FDA-Public Use
  Company Number: US-ROCHE-2213447

PATIENT

DRUGS (3)
  1. RITUXIMAB. [Suspect]
     Active Substance: RITUXIMAB
     Indication: RHEUMATOID ARTHRITIS
     Route: 042
  2. PF-05280586 (RITUXIMAB BIOSIMILAR) [Suspect]
     Active Substance: INVESTIGATIONAL BIOSIMILARS
     Indication: RHEUMATOID ARTHRITIS
     Route: 042
  3. METHOTREXATE. [Concomitant]
     Active Substance: METHOTREXATE

REACTIONS (1)
  - Neoplasm [Unknown]
